FAERS Safety Report 25065069 (Version 1)
Quarter: 2025Q1

REPORT INFORMATION
  Report Type: Spontaneous
  Country: US (occurrence: US)
  Receive Date: 20250311
  Receipt Date: 20250311
  Transmission Date: 20250409
  Serious: No
  Sender: ROCHE
  Company Number: US-ROCHE-10000228133

PATIENT
  Age: 53 Year
  Sex: Female
  Weight: 112.04 kg

DRUGS (1)
  1. OCREVUS [Suspect]
     Active Substance: OCRELIZUMAB
     Indication: Relapsing-remitting multiple sclerosis
     Route: 042

REACTIONS (3)
  - Acne [Not Recovered/Not Resolved]
  - Headache [Recovered/Resolved]
  - Alopecia [Recovered/Resolved]
